FAERS Safety Report 7712292-1 (Version None)
Quarter: 2011Q3

REPORT INFORMATION
  Report Type: 
  Country: None (occurrence: None)
  Receive Date: 20110826
  Receipt Date: 20110816
  Transmission Date: 20111222
  Serious: Yes (Other)
  Sender: FDA-Public Use
  Company Number: FR-KINGPHARMUSA00001-K201100963

PATIENT
  Age: 78 Year
  Sex: Male

DRUGS (5)
  1. ALTACE [Suspect]
     Indication: HYPERTENSION
     Dosage: UNKNOWN; DAILY
     Route: 048
  2. FELODIPINE [Suspect]
     Indication: HYPERTENSION
     Dosage: UNKNOWN; DAILY
     Route: 048
  3. INFLUENZA VACCINE [Suspect]
     Dosage: UNKNOWN; ONCE
     Route: 065
     Dates: start: 20110222, end: 20110222
  4. CENTYL K [Concomitant]
     Route: 065
  5. LERCANIDIPINE [Concomitant]
     Route: 065

REACTIONS (2)
  - LYMPHADENOPATHY [None]
  - PAIN [None]
